FAERS Safety Report 6145472-X (Version None)
Quarter: 2009Q2

REPORT INFORMATION
  Report Type: 
  Country: None (occurrence: None)
  Receive Date: 20090406
  Receipt Date: 20090325
  Transmission Date: 20091009
  Serious: Yes (Other)
  Sender: FDA-Public Use
  Company Number: US-PFIZER INC-2009188972

PATIENT
  Sex: Female
  Weight: 86.182 kg

DRUGS (2)
  1. LYRICA [Suspect]
     Indication: PAIN
     Dosage: 25 MG, 2X/DAY
  2. GABAPENTIN [Suspect]
     Dosage: 300 MG, 4X/DAY

REACTIONS (5)
  - CARPAL TUNNEL SYNDROME [None]
  - DYSSTASIA [None]
  - GAIT DISTURBANCE [None]
  - PAIN IN EXTREMITY [None]
  - TREMOR [None]
